FAERS Safety Report 21392345 (Version 1)
Quarter: 2022Q3

REPORT INFORMATION
  Report Type: Spontaneous
  Country: US (occurrence: US)
  Receive Date: 20220929
  Receipt Date: 20220929
  Transmission Date: 20221026
  Serious: No
  Sender: FDA-Public Use
  Company Number: US-ORGANON-O2209USA001320

PATIENT
  Sex: Female

DRUGS (2)
  1. REMERON [Suspect]
     Active Substance: MIRTAZAPINE
     Dosage: 1/2 TABLET AT NIGHT
     Route: 048
     Dates: end: 202207
  2. MIRTAZAPINE [Suspect]
     Active Substance: MIRTAZAPINE
     Dosage: UNK
     Route: 048

REACTIONS (4)
  - Taste disorder [Unknown]
  - Product availability issue [Unknown]
  - Product dose omission issue [Unknown]
  - Wrong technique in product usage process [Unknown]

NARRATIVE: CASE EVENT DATE: 20220701
